FAERS Safety Report 11327182 (Version 1)
Quarter: 2015Q3

REPORT INFORMATION
  Report Type: Spontaneous
  Country: FR (occurrence: FR)
  Receive Date: 20150731
  Receipt Date: 20150731
  Transmission Date: 20151125
  Serious: Yes (Hospitalization)
  Sender: FDA-Public Use
  Company Number: FR-PFIZER INC-2015253578

PATIENT
  Age: 91 Year
  Sex: Female

DRUGS (7)
  1. LORAZEPAM. [Suspect]
     Active Substance: LORAZEPAM
     Dosage: 2 MG, 2X/DAY
     Route: 048
     Dates: end: 20150129
  2. KARDEGIC [Concomitant]
     Active Substance: ASPIRIN LYSINE
     Dosage: UNK
  3. DISCOTRINE [Suspect]
     Active Substance: NITROGLYCERIN
     Dosage: 15 MG, DAILY
     Route: 062
  4. FORLAX [Concomitant]
     Active Substance: POLYETHYLENE GLYCOL 4000
     Dosage: UNK
  5. AMLODIPINE BESILATE [Suspect]
     Active Substance: AMLODIPINE BESYLATE
     Dosage: 10 MG, 1X/DAY
     Route: 048
     Dates: end: 20150206
  6. ESIDREX [Suspect]
     Active Substance: HYDROCHLOROTHIAZIDE
     Dosage: 1.25 MG, 1X/DAY
     Route: 048
     Dates: end: 20150205
  7. PERINDOPRIL [Suspect]
     Active Substance: PERINDOPRIL
     Dosage: 8 MG, 1X/DAY
     Route: 048
     Dates: end: 20150202

REACTIONS (3)
  - Fall [Unknown]
  - Wound [Unknown]
  - Hypotension [Recovering/Resolving]

NARRATIVE: CASE EVENT DATE: 20150129
